FAERS Safety Report 18365639 (Version 1)
Quarter: 2020Q4

REPORT INFORMATION
  Report Type: Spontaneous
  Country: ES (occurrence: ES)
  Receive Date: 20201009
  Receipt Date: 20201009
  Transmission Date: 20210114
  Serious: Yes (Hospitalization)
  Sender: FDA-Public Use
  Company Number: ES-TEVA-2020-ES-1836330

PATIENT
  Age: 88 Year
  Sex: Female

DRUGS (7)
  1. BISOPROLOL (2328A) [Suspect]
     Active Substance: BISOPROLOL
     Indication: ATRIAL FIBRILLATION
     Dosage: 2.5 MG
     Route: 048
     Dates: start: 20190815, end: 20200116
  2. SERTRALINA 50 MG 20 COMPRIMIDOS [Concomitant]
     Indication: PERSISTENT DEPRESSIVE DISORDER
     Dosage: 50 MG
     Route: 048
     Dates: start: 20190815
  3. DAIVOBET  50 MICROGRAMOS/ 0,5 MG/G POMADA , 1 TUBO DE 60 G [Concomitant]
     Indication: PSORIASIS
     Dosage: 1 DOSAGE FORMS
     Route: 061
     Dates: start: 20171115
  4. ALPRAZOLAM 0,5 MG 30 COMPRIMIDOS [Concomitant]
     Indication: PERSISTENT DEPRESSIVE DISORDER
     Dosage: 0.5 MG
     Route: 048
     Dates: start: 20130906
  5. PARACETAMOL 1.000 MG 40 COMPRIMIDOS [Concomitant]
     Indication: CELLULITIS
     Dosage: 1 GRAM
     Route: 048
     Dates: start: 20180226
  6. FUROSEMIDA 40 MG 30 COMPRIMIDOS [Concomitant]
     Active Substance: FUROSEMIDE
     Indication: CARDIAC FAILURE
     Dosage: 40 MG
     Route: 048
     Dates: start: 20190815
  7. ELIDEL 10 MG/G CREMA , 1 TUBO DE 60 G [Concomitant]
     Indication: PSORIASIS
     Dosage: 1 DOSAGE FORMS
     Route: 061
     Dates: start: 20151112

REACTIONS (1)
  - Atrioventricular block [Recovered/Resolved]

NARRATIVE: CASE EVENT DATE: 20200116
